FAERS Safety Report 20505179 (Version 1)
Quarter: 2022Q1

REPORT INFORMATION
  Report Type: Spontaneous
  Country: US (occurrence: US)
  Receive Date: 20220223
  Receipt Date: 20220223
  Transmission Date: 20220423
  Serious: No
  Sender: FDA-Public Use
  Company Number: US-LUPIN PHARMACEUTICALS INC.-2022-02335

PATIENT
  Sex: Female

DRUGS (11)
  1. MORPHINE SULFATE [Suspect]
     Active Substance: MORPHINE SULFATE
     Indication: Pain management
     Dosage: UNK
     Route: 048
  2. MORPHINE SULFATE [Suspect]
     Active Substance: MORPHINE SULFATE
     Dosage: 150 MG (MORPHINE EQUIVALENT DAILY DOSE; ON WEEKS 1 AND 2 AFTER THE FULVESTRANT DOSE)
     Route: 048
  3. MORPHINE SULFATE [Suspect]
     Active Substance: MORPHINE SULFATE
     Dosage: 130 MG (ON WEEKS 3 AND 4 AFTER THE FULVESTRANT DOSE)
     Route: 048
  4. FENTANYL [Suspect]
     Active Substance: FENTANYL
     Indication: Pain management
     Dosage: UNK
     Route: 062
  5. ACETAMINOPHEN\HYDROCODONE [Concomitant]
     Active Substance: ACETAMINOPHEN\HYDROCODONE
     Indication: Pain management
     Dosage: 6 DOSES A DAY ON WEEKS 1-2 AND 4 DOSES A DAY ON WEEKS 3-4
     Route: 048
  6. FULVESTRANT [Concomitant]
     Active Substance: FULVESTRANT
     Indication: Breast cancer metastatic
     Dosage: UNK
     Route: 065
  7. PALBOCICLIB [Concomitant]
     Active Substance: PALBOCICLIB
     Indication: Breast cancer metastatic
     Dosage: UNK
     Route: 065
  8. DENOSUMAB [Concomitant]
     Active Substance: DENOSUMAB
     Indication: Bone pain
     Dosage: 120 MG, 6 WEEKS
     Route: 058
  9. LORATADINE [Concomitant]
     Active Substance: LORATADINE
     Indication: Pain
     Dosage: UNK
     Route: 065
  10. XTAMPZA ER [Concomitant]
     Active Substance: OXYCODONE
     Indication: Pain management
     Dosage: 27 MILLIGRAM (27 MILLIGRAMS, EXTENDED-RELEASE (THERAPY WAS CHANGED TO 18MG EVERY 8H))
     Route: 065
  11. XTAMPZA ER [Concomitant]
     Active Substance: OXYCODONE
     Dosage: 30 MILLIGRAM
     Route: 065

REACTIONS (1)
  - Drug ineffective [Unknown]
